FAERS Safety Report 15765320 (Version 1)
Quarter: 2018Q4

REPORT INFORMATION
  Report Type: Spontaneous
  Country: GB (occurrence: GB)
  Receive Date: 20181227
  Receipt Date: 20181227
  Transmission Date: 20190205
  Serious: Yes (Hospitalization)
  Sender: FDA-Public Use
  Company Number: GB-SAKK-2018SA390352AA

PATIENT
  Age: 73 Year
  Sex: Male
  Weight: 92 kg

DRUGS (19)
  1. DOCETAXEL. [Suspect]
     Active Substance: DOCETAXEL
     Indication: HORMONE-REFRACTORY PROSTATE CANCER
     Dosage: 432 MG, QW
     Route: 042
     Dates: start: 20181122, end: 20181130
  2. APIXABAN [Concomitant]
     Active Substance: APIXABAN
  3. SALBUTAMOL [Concomitant]
     Active Substance: ALBUTEROL
  4. DEXAMETHASONE. [Concomitant]
     Active Substance: DEXAMETHASONE
  5. BISOPROLOL [Concomitant]
     Active Substance: BISOPROLOL
  6. PARACETAMOL [Concomitant]
     Active Substance: ACETAMINOPHEN
  7. SODIUM HYALURONATE [Concomitant]
     Active Substance: HYALURONATE SODIUM
  8. CLENIL MODULITE [Concomitant]
     Active Substance: BECLOMETHASONE DIPROPIONATE
  9. AMLODIPINE [Concomitant]
     Active Substance: AMLODIPINE BESYLATE
  10. PREDNISOLONE. [Concomitant]
     Active Substance: PREDNISOLONE
  11. LANSOPRAZOLE. [Concomitant]
     Active Substance: LANSOPRAZOLE
  12. FERROUS SULFATE. [Concomitant]
     Active Substance: FERROUS SULFATE
  13. CETIRIZINE [Concomitant]
     Active Substance: CETIRIZINE HYDROCHLORIDE
  14. PREGABALIN. [Concomitant]
     Active Substance: PREGABALIN
  15. OXYCODONE [Concomitant]
     Active Substance: OXYCODONE
  16. NORTRIPTYLINE [Concomitant]
     Active Substance: NORTRIPTYLINE
  17. PREDNISOLONE. [Concomitant]
     Active Substance: PREDNISOLONE
  18. DERMOL [BENZALKONIUM CHLORIDE;CHLORHEXIDINE HYDROCHLORIDE;ISOPROPYL MY [Concomitant]
  19. RAMIPRIL. [Concomitant]
     Active Substance: RAMIPRIL

REACTIONS (17)
  - Hypovolaemia [Unknown]
  - Unresponsive to stimuli [Unknown]
  - Mouth ulceration [Unknown]
  - Rash vesicular [Not Recovered/Not Resolved]
  - Somnolence [Unknown]
  - Faeces discoloured [Unknown]
  - Confusional state [Unknown]
  - Bacterial sepsis [Recovering/Resolving]
  - Diarrhoea [Unknown]
  - Erythema [Unknown]
  - Pallor [Unknown]
  - Tonsillitis [Unknown]
  - Malaise [Unknown]
  - Productive cough [Unknown]
  - Acute kidney injury [Unknown]
  - Hyponatraemia [Unknown]
  - Pruritus [Unknown]

NARRATIVE: CASE EVENT DATE: 20181124
